FAERS Safety Report 8333339 (Version 3)
Quarter: 2012Q4

REPORT INFORMATION
  Report Type: 
  Country: US (occurrence: US)
  Receive Date: 20120112
  Receipt Date: 20121019
  Transmission Date: 20130627
  Serious: No
  Sender: FDA-Public Use
  Company Number: US-PFIZER INC-2012007653

PATIENT
  Sex: Female

DRUGS (2)
  1. CHANTIX [Suspect]
     Indication: SMOKING CESSATION THERAPY
     Dosage: 0.5 mg, 1x/day
     Route: 048
     Dates: start: 20111230
  2. CHANTIX [Suspect]
     Dosage: UNK
     Route: 048

REACTIONS (7)
  - Abdominal pain upper [Unknown]
  - Constipation [Unknown]
  - Abnormal dreams [Unknown]
  - Agitation [Unknown]
  - Nightmare [Unknown]
  - Hostility [Unknown]
  - Depression [Unknown]
